FAERS Safety Report 4499902-X (Version None)
Quarter: 2004Q4

REPORT INFORMATION
  Report Type: 
  Country: None (occurrence: None)
  Receive Date: 20041112
  Receipt Date: 20041102
  Transmission Date: 20050328
  Serious: Yes (Hospitalization)
  Sender: FDA-Public Use
  Company Number: US-AMGEN-US097896

PATIENT
  Age: 65 Year
  Sex: Female

DRUGS (4)
  1. NEULASTA [Suspect]
     Indication: CHEMOTHERAPY
     Route: 058
  2. ADRIAMYCIN PFS [Concomitant]
  3. CYTOXAN [Concomitant]
  4. TAXOL [Concomitant]

REACTIONS (5)
  - DYSPNOEA EXERTIONAL [None]
  - FATIGUE [None]
  - HYPOXIA [None]
  - LUNG INFILTRATION [None]
  - PYREXIA [None]
